FAERS Safety Report 5070731-1 (Version None)
Quarter: 2006Q3

REPORT INFORMATION
  Report Type: 
  Country: None (occurrence: None)
  Receive Date: 20060804
  Receipt Date: 20051026
  Transmission Date: 20061208
  Serious: No
  Sender: FDA-Public Use
  Company Number: US-GLAXOSMITHKLINE-A0579735A

PATIENT
  Age: 52 Year
  Sex: Female

DRUGS (3)
  1. NICORETTE [Suspect]
     Dates: end: 20051025
  2. NICODERM CQ [Suspect]
     Dates: start: 20051026
  3. NICOTINE [Concomitant]

REACTIONS (5)
  - CRYING [None]
  - DISTURBANCE IN ATTENTION [None]
  - NERVOUSNESS [None]
  - NICOTINE DEPENDENCE [None]
  - PERFORMANCE STATUS DECREASED [None]
